FAERS Safety Report 6392277-0 (Version None)
Quarter: 2009Q4

REPORT INFORMATION
  Report Type: 
  Country: None (occurrence: None)
  Receive Date: 20091007
  Receipt Date: 20090924
  Transmission Date: 20100525
  Serious: Yes (Other)
  Sender: FDA-Public Use
  Company Number: JP-PFIZER INC-2009277866

PATIENT
  Age: 76 Year

DRUGS (9)
  1. ZOLOFT [Suspect]
     Indication: DEPRESSION
     Route: 048
     Dates: start: 20090915, end: 20090917
  2. LENDORMIN [Suspect]
     Route: 048
     Dates: end: 20090917
  3. PARIET [Concomitant]
     Route: 048
     Dates: end: 20090917
  4. THYRADIN S [Concomitant]
     Route: 048
     Dates: end: 20090917
  5. ALLOPURINOL [Concomitant]
     Route: 048
     Dates: end: 20090917
  6. THEO-DUR [Concomitant]
     Route: 048
     Dates: end: 20090917
  7. ADALAT CC [Concomitant]
     Route: 048
     Dates: end: 20090917
  8. SODIUM BICARBONATE [Concomitant]
     Route: 048
     Dates: end: 20090917
  9. DIART [Concomitant]
     Route: 048
     Dates: end: 20090917

REACTIONS (6)
  - DYSARTHRIA [None]
  - HYPOGLYCAEMIA [None]
  - HYPOPHAGIA [None]
  - LOSS OF CONSCIOUSNESS [None]
  - SOMNOLENCE [None]
  - UNRESPONSIVE TO STIMULI [None]
